FAERS Safety Report 4594087-3 (Version None)
Quarter: 2005Q1

REPORT INFORMATION
  Report Type: 
  Country: None (occurrence: None)
  Receive Date: 20050301
  Receipt Date: 20050218
  Transmission Date: 20050727
  Serious: Yes (Hospitalization, Disabling, Other)
  Sender: FDA-Public Use
  Company Number: US-MERCK-0502USA02450

PATIENT
  Age: 56 Year
  Sex: Female

DRUGS (2)
  1. VIOXX [Suspect]
     Route: 048
  2. [THERAPY UNSPECIFIED] [Concomitant]
     Route: 065

REACTIONS (30)
  - ADVERSE EVENT [None]
  - ANAEMIA [None]
  - ARTHRALGIA [None]
  - BACK PAIN [None]
  - BLOOD CHOLESTEROL ABNORMAL [None]
  - BRONCHITIS CHRONIC [None]
  - CARDIAC DISORDER [None]
  - CHOLECYSTECTOMY [None]
  - DEPRESSION [None]
  - DIABETES MELLITUS [None]
  - DISABILITY [None]
  - DRUG INEFFECTIVE [None]
  - DYSKINESIA [None]
  - FOOT FRACTURE [None]
  - GALLBLADDER DISORDER [None]
  - HYPERTENSION [None]
  - LOWER LIMB FRACTURE [None]
  - MUSCLE SPASMS [None]
  - MYOCARDIAL INFARCTION [None]
  - NECK PAIN [None]
  - PAIN [None]
  - PARKINSON'S DISEASE [None]
  - POOR PERIPHERAL CIRCULATION [None]
  - RESTLESS LEGS SYNDROME [None]
  - SLEEP APNOEA SYNDROME [None]
  - STRESS FRACTURE [None]
  - THYROID DISORDER [None]
  - THYROIDECTOMY PARTIAL [None]
  - TRANSIENT ISCHAEMIC ATTACK [None]
  - TREMOR [None]
